FAERS Safety Report 5688366-6 (Version None)
Quarter: 2008Q1

REPORT INFORMATION
  Report Type: 
  Country: None (occurrence: None)
  Receive Date: 20080328
  Receipt Date: 20080328
  Transmission Date: 20080703
  Serious: No
  Sender: FDA-Public Use
  Company Number: None

PATIENT
  Age: 51 Year
  Sex: Male
  Weight: 92.9874 kg

DRUGS (1)
  1. FLONASE [Suspect]
     Indication: SEASONAL ALLERGY
     Dosage: TWO PUFFS OR SQIRTS TWICE A DAY NASAL
     Route: 045
     Dates: start: 20020405, end: 20070810

REACTIONS (2)
  - ANOSMIA [None]
  - OLFACTORY NERVE DISORDER [None]
